FAERS Safety Report 7231901-7 (Version None)
Quarter: 2011Q1

REPORT INFORMATION
  Report Type: 
  Country: None (occurrence: None)
  Receive Date: 20110118
  Receipt Date: 20110110
  Transmission Date: 20110831
  Serious: Yes (Other)
  Sender: FDA-Public Use
  Company Number: US-MYLANLABS-2011S1000665

PATIENT
  Age: 19 Year
  Sex: Male
  Weight: 85.28 kg

DRUGS (1)
  1. AMNESTEEM [Suspect]
     Indication: ACNE
     Route: 048
     Dates: start: 20101001, end: 20101231

REACTIONS (1)
  - PENILE HAEMORRHAGE [None]
